FAERS Safety Report 6339960-0 (Version None)
Quarter: 2009Q3

REPORT INFORMATION
  Report Type: 
  Country: None (occurrence: None)
  Receive Date: 20090903
  Receipt Date: 20090824
  Transmission Date: 20100115
  Serious: Yes (Death)
  Sender: FDA-Public Use
  Company Number: NL-TYCO HEALTHCARE/MALLINCKRODT-T200901598

PATIENT

DRUGS (2)
  1. OPTIRAY 350 [Suspect]
     Indication: COMPUTERISED TOMOGRAM THORAX
     Dosage: 80 ML, SINGLE
     Dates: start: 20090103, end: 20090103
  2. SODIUM CHLORIDE [Suspect]
     Indication: COMPUTERISED TOMOGRAM THORAX
     Dosage: 40 ML, SINGLE
     Dates: start: 20090103, end: 20090103

REACTIONS (1)
  - NEPHROPATHY [None]
